FAERS Safety Report 11705645 (Version 2)
Quarter: 2016Q1

REPORT INFORMATION
  Report Type: Spontaneous
  Country: FR (occurrence: FR)
  Receive Date: 20151106
  Receipt Date: 20160325
  Transmission Date: 20160525
  Serious: Yes (Other)
  Sender: FDA-Public Use
  Company Number: FR-PFIZER INC-2015371544

PATIENT
  Age: 70 Year
  Sex: Female

DRUGS (4)
  1. TEMESTA [Concomitant]
     Active Substance: LORAZEPAM
     Dosage: UNK
  2. MIRTAZAPINE. [Concomitant]
     Active Substance: MIRTAZAPINE
     Dosage: UNK
  3. PAROXETINE [Concomitant]
     Active Substance: PAROXETINE\PAROXETINE HYDROCHLORIDE
     Dosage: UNK
  4. LYRICA [Suspect]
     Active Substance: PREGABALIN
     Indication: DEPRESSION
     Dosage: 50 MG, DAILY
     Dates: start: 201409, end: 201601

REACTIONS (2)
  - Age-related macular degeneration [Not Recovered/Not Resolved]
  - Product use issue [Unknown]
